FAERS Safety Report 19465859 (Version 2)
Quarter: 2021Q2

REPORT INFORMATION
  Report Type: Report from Study
  Country: EG (occurrence: EG)
  Receive Date: 20210626
  Receipt Date: 20210626
  Transmission Date: 20210717
  Serious: Yes (Other)
  Sender: FDA-Public Use
  Company Number: NVSC2021EG141215

PATIENT
  Age: 25 Year
  Sex: Female

DRUGS (2)
  1. GILENYA [Suspect]
     Active Substance: FINGOLIMOD HYDROCHLORIDE
     Indication: MULTIPLE SCLEROSIS
     Dosage: 0.5 MG, QD
     Route: 048
     Dates: start: 202009, end: 20210612
  2. VITAMIN D [Concomitant]
     Active Substance: VITAMIN D NOS
     Indication: PRODUCT USED FOR UNKNOWN INDICATION
     Dosage: 1 DF, QD
     Route: 065

REACTIONS (5)
  - Dyspnoea [Recovering/Resolving]
  - Nervousness [Recovered/Resolved]
  - Movement disorder [Recovering/Resolving]
  - Blood pressure fluctuation [Recovering/Resolving]
  - Stress [Recovered/Resolved]

NARRATIVE: CASE EVENT DATE: 20210520
